FAERS Safety Report 14312179 (Version 1)
Quarter: 2017Q4

REPORT INFORMATION
  Report Type: Spontaneous
  Country: SK (occurrence: SK)
  Receive Date: 20171221
  Receipt Date: 20171221
  Transmission Date: 20180321
  Serious: Yes (Other)
  Sender: FDA-Public Use
  Company Number: SK-EMD SERONO-9003681

PATIENT

DRUGS (1)
  1. REBIF [Suspect]
     Active Substance: INTERFERON BETA-1A
     Indication: PRODUCT USED FOR UNKNOWN INDICATION
     Route: 064

REACTIONS (4)
  - Infectious mononucleosis [Unknown]
  - Foetal exposure during pregnancy [Recovered/Resolved]
  - Nodule [Unknown]
  - Muscle rupture [Unknown]

NARRATIVE: CASE EVENT DATE: 201612
